FAERS Safety Report 7204003-3 (Version None)
Quarter: 2010Q4

REPORT INFORMATION
  Report Type: 
  Country: None (occurrence: None)
  Receive Date: 20101230
  Receipt Date: 20101215
  Transmission Date: 20110411
  Serious: No
  Sender: FDA-Public Use
  Company Number: US-PFIZER INC-2010173652

PATIENT
  Age: 57 Year
  Sex: Male

DRUGS (1)
  1. LIPITOR [Suspect]
     Dosage: 40 MG

REACTIONS (2)
  - ARTHRALGIA [None]
  - MYALGIA [None]
